FAERS Safety Report 23079376 (Version 1)
Quarter: 2023Q4

REPORT INFORMATION
  Report Type: Spontaneous
  Country: US (occurrence: US)
  Receive Date: 20231018
  Receipt Date: 20231018
  Transmission Date: 20240109
  Serious: No
  Sender: FDA-Public Use
  Company Number: US-BoehringerIngelheim-2023-BI-267564

PATIENT

DRUGS (3)
  1. JARDIANCE [Suspect]
     Active Substance: EMPAGLIFLOZIN
     Indication: Medical diet
     Dosage: FORM STRENGTH: 25 MILLIGRAM
  2. FARXIGA [Concomitant]
     Active Substance: DAPAGLIFLOZIN PROPANEDIOL
     Indication: Medical diet
  3. INVOKANA [Concomitant]
     Active Substance: CANAGLIFLOZIN
     Indication: Medical diet

REACTIONS (3)
  - Product use in unapproved indication [Unknown]
  - Polyuria [Unknown]
  - Dehydration [Unknown]
